FAERS Safety Report 7544423-0 (Version None)
Quarter: 2011Q2

REPORT INFORMATION
  Report Type: 
  Country: None (occurrence: None)
  Receive Date: 20110613
  Receipt Date: 20081127
  Transmission Date: 20111010
  Serious: Yes (Death)
  Sender: FDA-Public Use
  Company Number: PHHY2008JP28303

PATIENT
  Sex: Male

DRUGS (7)
  1. ZOLEDRONIC ACID [Suspect]
     Indication: METASTASES TO CENTRAL NERVOUS SYSTEM
  2. ZOLEDRONIC ACID [Suspect]
     Indication: METASTASES TO LUNG
  3. ZOLEDRONIC ACID [Suspect]
     Indication: METASTASES TO ADRENALS
  4. ZOLEDRONIC ACID [Suspect]
     Indication: LUNG ADENOCARCINOMA
     Dosage: 4 MG, UNK
     Route: 042
     Dates: start: 20071102, end: 20071102
  5. ZOLEDRONIC ACID [Suspect]
     Indication: METASTASES TO BONE
  6. LOXONIN [Concomitant]
     Dosage: 60 MG, UNK
     Route: 048
     Dates: start: 20071103, end: 20071119
  7. ZOLPIDEM [Concomitant]
     Dosage: 5 MG, UNK
     Route: 048
     Dates: start: 20071116, end: 20071122

REACTIONS (5)
  - NEOPLASM MALIGNANT [None]
  - PAIN [None]
  - INSOMNIA [None]
  - DEATH [None]
  - BLOOD UREA INCREASED [None]
